FAERS Safety Report 4694274-X (Version None)
Quarter: 2005Q2

REPORT INFORMATION
  Report Type: 
  Country: None (occurrence: None)
  Receive Date: 20050620
  Receipt Date: 20050607
  Transmission Date: 20051028
  Serious: Yes (Other)
  Sender: FDA-Public Use
  Company Number: 200515489GDDC

PATIENT
  Sex: Male

DRUGS (8)
  1. METRONIDAZOLE [Suspect]
     Indication: PNEUMONIA
     Route: 048
     Dates: start: 20020302, end: 20020506
  2. AMIODARONE [Suspect]
     Indication: ARRHYTHMIA
     Dosage: DOSE: 300-600
     Route: 042
     Dates: start: 20020503, end: 20020506
  3. CEFACLOR MONOHYDRATE [Suspect]
     Indication: PNEUMONIA
     Route: 048
     Dates: start: 20020503, end: 20020506
  4. PAROXETINE HCL [Concomitant]
     Route: 048
  5. ASPIRIN [Concomitant]
     Route: 048
  6. RANITIDINE [Concomitant]
     Route: 048
  7. RAMIPRIL [Concomitant]
     Route: 048
  8. ISOSORBIDE DINITRATE [Concomitant]
     Route: 048

REACTIONS (1)
  - HEPATITIS [None]
